FAERS Safety Report 7501463-5 (Version None)
Quarter: 2011Q2

REPORT INFORMATION
  Report Type: 
  Country: None (occurrence: None)
  Receive Date: 20110524
  Receipt Date: 20090930
  Transmission Date: 20111010
  Serious: Yes (Other)
  Sender: FDA-Public Use
  Company Number: US-BAYER-200934513NA

PATIENT
  Age: 51 Year
  Sex: Female
  Weight: 63 kg

DRUGS (13)
  1. GENTAMICIN [Concomitant]
     Dosage: 500MG
     Route: 042
     Dates: start: 20060925
  2. MORPHINE [Concomitant]
  3. VANCOMYCIN [Concomitant]
     Dosage: UNK
     Dates: start: 20060701, end: 20060801
  4. BUMEX [Concomitant]
  5. CONCERTA [Concomitant]
     Dosage: 36MG
  6. NIPRIDE [Concomitant]
     Dosage: TITRATED
  7. TRASYLOL [Suspect]
     Indication: MITRAL VALVE REPLACEMENT
     Dosage: 200 ML CARDIOPULMONARY BYPASS PRIME, 200ML THEN 50ML/HOUR INFUSION
     Route: 042
     Dates: start: 20060925, end: 20060925
  8. HEPARIN [Concomitant]
     Dosage: 20000
     Route: 042
     Dates: start: 20060925
  9. INSULIN [Concomitant]
     Dosage: TITRATED
     Route: 042
     Dates: start: 20060925, end: 20060928
  10. NITROGLYCERIN [Concomitant]
     Dosage: UNK
     Dates: start: 20060923
  11. HYDROCODONE [Concomitant]
     Dosage: 5/500
  12. NICOTINE [Concomitant]
     Dosage: 21MG
  13. ZYVOX [Concomitant]
     Dosage: 600MGUNK
     Dates: start: 20060801

REACTIONS (12)
  - RENAL INJURY [None]
  - RENAL IMPAIRMENT [None]
  - EMOTIONAL DISTRESS [None]
  - STRESS [None]
  - PAIN [None]
  - DEPRESSION [None]
  - FEAR [None]
  - ANXIETY [None]
  - MULTI-ORGAN FAILURE [None]
  - UNEVALUABLE EVENT [None]
  - RENAL FAILURE [None]
  - INJURY [None]
